FAERS Safety Report 4323813-3 (Version None)
Quarter: 2004Q1

REPORT INFORMATION
  Report Type: 
  Country: None (occurrence: None)
  Receive Date: 20040323
  Receipt Date: 20040310
  Transmission Date: 20041129
  Serious: Yes (Death)
  Sender: FDA-Public Use
  Company Number: 2004-01125

PATIENT
  Age: 45 Year
  Sex: Male
  Weight: 88 kg

DRUGS (3)
  1. DIAZEPAM [Suspect]
  2. MK-801 MALEATE (DIZOCILPINE) 25MG [Suspect]
     Indication: DEPRESSION
  3. ETHANOL (ETHANOL) [Suspect]

REACTIONS (2)
  - COMA [None]
  - DRUG TOXICITY [None]
